FAERS Safety Report 7763661 (Version 6)
Quarter: 2013Q3

REPORT INFORMATION
  Report Type: Report from Study
  Country: DE (occurrence: DE)
  Receive Date: 20110118
  Receipt Date: 20130725
  Transmission Date: 20140515
  Serious: Yes (Hospitalization)
  Sender: FDA-Public Use
  Company Number: DE-ROCHE-745627

PATIENT
  Age: 69 Year
  Sex: Female
  Weight: 69 kg

DRUGS (5)
  1. BEVACIZUMAB [Suspect]
     Indication: HER-2 POSITIVE BREAST CANCER
     Dosage: DOSE FORM: VIALS; DOSE LEVEL: 15 MG/KG; LAST DOSE: 22 NOV 2010.  PERMANENTLY DISCONTINUED.
     Route: 042
     Dates: start: 20101011, end: 20101122
  2. TRASTUZUMAB [Suspect]
     Indication: HER-2 POSITIVE BREAST CANCER
     Dosage: LOADING DOSE. DAY 1 OF CYCLE 1 ONLY PER PROTOCOL.
     Route: 042
     Dates: start: 20101011, end: 20101011
  3. TRASTUZUMAB [Suspect]
     Dosage: MAINTENANCE DOSE. DOSE FORM: VIALS; DOSE LEVEL: 6 MG/KG; LAST DOSE PRIOR TO SAE: 22 NOV 2010
     Route: 042
  4. CARBOPLATIN [Suspect]
     Indication: HER-2 POSITIVE BREAST CANCER
     Dosage: DOSAGE FORM: VIALS; DOSE LEVEL: 6 AUC; LAST DOSE PRIOR TO SAE: 22 NOV 2010
     Route: 042
  5. DOCETAXEL [Suspect]
     Indication: HER-2 POSITIVE BREAST CANCER
     Dosage: DOSE FORM: VIALS; DOSE LEVEL: 75 MG/M2; LAST DOSE PRIOR TO SAE: 22 NOV 2010
     Route: 042

REACTIONS (2)
  - Gastric ulcer [Recovered/Resolved]
  - Oesophagitis [Recovered/Resolved]
